FAERS Safety Report 8228325-2 (Version None)
Quarter: 2012Q1

REPORT INFORMATION
  Report Type: 
  Country: None (occurrence: None)
  Receive Date: 20120322
  Receipt Date: 20110929
  Transmission Date: 20120608
  Serious: No
  Sender: FDA-Public Use
  Company Number: US-BRISTOL-MYERS SQUIBB COMPANY-16118754

PATIENT
  Age: 69 Year
  Sex: Male

DRUGS (5)
  1. DEXAMETHASONE [Concomitant]
     Dosage: LIQUID
     Dates: start: 20110927
  2. DIPHENHYDRAMINE HCL [Concomitant]
     Dosage: LIQUID
     Dates: start: 20110927
  3. ONDANSETRON [Concomitant]
  4. FAMOTIDINE [Concomitant]
     Dosage: LIQUID
     Dates: start: 20110927
  5. ERBITUX [Suspect]
     Dosage: FORM:LIQ
     Dates: start: 20110927, end: 20110927

REACTIONS (1)
  - ADVERSE EVENT [None]
